FAERS Safety Report 6216478-7 (Version None)
Quarter: 2009Q2

REPORT INFORMATION
  Report Type: 
  Country: None (occurrence: None)
  Receive Date: 20090605
  Receipt Date: 20090527
  Transmission Date: 20091009
  Serious: Yes (Other)
  Sender: FDA-Public Use
  Company Number: GB-JNJFOC-20090507106

PATIENT
  Sex: Female
  Weight: 54 kg

DRUGS (7)
  1. REMICADE [Suspect]
     Indication: RHEUMATOID ARTHRITIS
  2. METHOTREXATE [Concomitant]
  3. PROPRANOLOL HYDROCHLORIDE [Concomitant]
  4. FOLIC ACID [Concomitant]
  5. COD LIVER OIL [Concomitant]
  6. LISINOPRIL [Concomitant]
  7. SIMVASTATIN [Concomitant]

REACTIONS (3)
  - ACTINIC KERATOSIS [None]
  - BOWEN'S DISEASE [None]
  - SEBORRHOEIC KERATOSIS [None]
